FAERS Safety Report 5484382-8 (Version None)
Quarter: 2007Q4

REPORT INFORMATION
  Report Type: 
  Country: None (occurrence: None)
  Receive Date: 20071010
  Receipt Date: 20071003
  Transmission Date: 20080405
  Serious: Yes (Hospitalization, Other)
  Sender: FDA-Public Use
  Company Number: 163-20785-07091553

PATIENT
  Age: 76 Year
  Sex: Female

DRUGS (8)
  1. THALOMID [Suspect]
     Indication: MULTIPLE MYELOMA
     Dosage: 200 MG, 4 IN 1 D, ORAL
     Route: 048
     Dates: start: 20070817, end: 20070901
  2. ARIMIDEX [Concomitant]
  3. AREDIA [Concomitant]
  4. LOTREL [Concomitant]
  5. LASIX [Concomitant]
  6. SENOKOT [Concomitant]
  7. ASPIRIN [Concomitant]
  8. PROTONIX [Concomitant]

REACTIONS (2)
  - FLUID OVERLOAD [None]
  - PULMONARY THROMBOSIS [None]
